FAERS Safety Report 4665962-6 (Version None)
Quarter: 2005Q2

REPORT INFORMATION
  Report Type: 
  Country: None (occurrence: None)
  Receive Date: 20050517
  Receipt Date: 20050517
  Transmission Date: 20051028
  Serious: Yes (Hospitalization)
  Sender: FDA-Public Use
  Company Number: None

PATIENT
  Age: 59 Year
  Sex: Male
  Weight: 83.6887 kg

DRUGS (3)
  1. ASPIRIN [Suspect]
     Indication: OSTEOARTHRITIS
     Dosage: 325MG  Q4H  ORAL
     Route: 048
     Dates: start: 20050218, end: 20050418
  2. EXCEDRIN (MIGRAINE) [Suspect]
     Indication: OSTEOARTHRITIS
     Dosage: 1  Q4H  ORAL
     Route: 048
  3. ALCOHOL [Concomitant]

REACTIONS (11)
  - ANOREXIA [None]
  - ASTHENIA [None]
  - DIZZINESS [None]
  - DYSPHAGIA [None]
  - DYSPNOEA [None]
  - LETHARGY [None]
  - MUSCULOSKELETAL DISCOMFORT [None]
  - OEDEMA PERIPHERAL [None]
  - SELF-MEDICATION [None]
  - SWELLING FACE [None]
  - WEIGHT DECREASED [None]
